FAERS Safety Report 19466040 (Version 6)
Quarter: 2022Q1

REPORT INFORMATION
  Report Type: Report from Study
  Country: US (occurrence: US)
  Receive Date: 20210626
  Receipt Date: 20220222
  Transmission Date: 20220423
  Serious: Yes (Disabling, Other)
  Sender: FDA-Public Use
  Company Number: NVSC2021US135175

PATIENT
  Age: 68 Year
  Sex: Male

DRUGS (8)
  1. COSENTYX [Suspect]
     Active Substance: SECUKINUMAB
     Indication: Product used for unknown indication
     Dosage: 300 MG, QMO
     Route: 065
     Dates: start: 202008, end: 202108
  2. COSENTYX [Suspect]
     Active Substance: SECUKINUMAB
     Dosage: 150 MG, QMO
     Route: 065
  3. BUDESONIDE [Suspect]
     Active Substance: BUDESONIDE
     Indication: Product used for unknown indication
     Dosage: UNK
     Route: 065
  4. VALSARTAN [Suspect]
     Active Substance: VALSARTAN
     Indication: Product used for unknown indication
     Dosage: UNK
     Route: 065
  5. AZITHROMYCIN [Suspect]
     Active Substance: AZITHROMYCIN
     Indication: Product used for unknown indication
     Dosage: UNK
     Route: 065
  6. OXYGEN [Suspect]
     Active Substance: OXYGEN
     Indication: Product used for unknown indication
     Dosage: UNK
     Route: 065
  7. BROVANA [Suspect]
     Active Substance: ARFORMOTEROL TARTRATE
     Indication: Product used for unknown indication
     Dosage: UNK
     Route: 065
  8. DUONEB [Suspect]
     Active Substance: ALBUTEROL SULFATE\IPRATROPIUM BROMIDE
     Indication: Product used for unknown indication
     Dosage: UNK
     Route: 065

REACTIONS (19)
  - Stomatitis [Unknown]
  - Oral pain [Unknown]
  - Oral mucosal blistering [Unknown]
  - Angular cheilitis [Unknown]
  - Breath odour [Unknown]
  - Tongue discomfort [Unknown]
  - Hypophagia [Unknown]
  - Mouth haemorrhage [Unknown]
  - Glossodynia [Unknown]
  - Chapped lips [Unknown]
  - Skin infection [Unknown]
  - Skin fissures [Unknown]
  - Oedema peripheral [Unknown]
  - Pain in extremity [Unknown]
  - Onychomadesis [Unknown]
  - Limb discomfort [Unknown]
  - Infection [Unknown]
  - Unevaluable event [Unknown]
  - Localised infection [Unknown]

NARRATIVE: CASE EVENT DATE: 20200801
